FAERS Safety Report 16006539 (Version 1)
Quarter: 2019Q1

REPORT INFORMATION
  Report Type: Spontaneous
  Country: US (occurrence: US)
  Receive Date: 20190226
  Receipt Date: 20190226
  Transmission Date: 20190418
  Serious: No
  Sender: FDA-Public Use
  Company Number: US-FERRINGPH-2018FE06459

PATIENT
  Age: 64 Year
  Sex: Male
  Weight: 88.44 kg

DRUGS (2)
  1. CORTISONE [Concomitant]
     Active Substance: CORTISONE\HYDROCORTISONE
     Indication: PRODUCT USED FOR UNKNOWN INDICATION
     Route: 065
  2. DESMOPRESSIN [Suspect]
     Active Substance: DESMOPRESSIN
     Indication: DIABETES INSIPIDUS
     Dosage: 10 MCG/0.1ML 1 SPRAY IN ONE NOSTRIL ONCE DAILY
     Route: 045
     Dates: start: 20180814

REACTIONS (5)
  - Product dispensing issue [Unknown]
  - Extra dose administered [Unknown]
  - Product availability issue [Unknown]
  - Product residue present [Unknown]
  - Weight increased [Unknown]

NARRATIVE: CASE EVENT DATE: 2018
